FAERS Safety Report 4542703-4 (Version None)
Quarter: 2004Q4

REPORT INFORMATION
  Report Type: 
  Country: None (occurrence: None)
  Receive Date: 20041223
  Receipt Date: 20040930
  Transmission Date: 20050328
  Serious: No
  Sender: FDA-Public Use
  Company Number: US-JNJFOC-20041000926

PATIENT
  Age: 22 Year
  Sex: Female
  Weight: 87.9978 kg

DRUGS (1)
  1. ORTHO EVRA [Suspect]
     Indication: CONTRACEPTION
     Dosage: 1 DOSE(S), 3 IN 4 WEEK, TRANSDERMAL
     Route: 062
     Dates: start: 20040801

REACTIONS (3)
  - ABDOMINAL PAIN [None]
  - HEADACHE [None]
  - NAUSEA [None]
